FAERS Safety Report 7806099-4 (Version None)
Quarter: 2011Q4

REPORT INFORMATION
  Report Type: 
  Country: None (occurrence: None)
  Receive Date: 20111011
  Receipt Date: 20111006
  Transmission Date: 20120403
  Serious: No
  Sender: FDA-Public Use
  Company Number: US-PFIZER INC-2011239162

PATIENT
  Sex: Female

DRUGS (3)
  1. LYRICA [Suspect]
     Dosage: UNK
  2. CYMBALTA [Suspect]
     Dosage: UNK
  3. LYRICA [Suspect]
     Dosage: UNK, 2X/DAY

REACTIONS (5)
  - FEELING ABNORMAL [None]
  - WEIGHT INCREASED [None]
  - DRUG INEFFECTIVE [None]
  - HYPERSOMNIA [None]
  - AMNESIA [None]
